FAERS Safety Report 6825762-5 (Version None)
Quarter: 2010Q3

REPORT INFORMATION
  Report Type: 
  Country: None (occurrence: None)
  Receive Date: 20100709
  Receipt Date: 20100630
  Transmission Date: 20110219
  Serious: No
  Sender: FDA-Public Use
  Company Number: US-BIOGENIDEC-2010BI022628

PATIENT
  Age: 47 Year
  Sex: Female

DRUGS (2)
  1. TYSABRI [Suspect]
     Indication: MULTIPLE SCLEROSIS
     Route: 042
     Dates: start: 20080215, end: 20090109
  2. TYSABRI [Suspect]
     Route: 042
     Dates: start: 20090528

REACTIONS (11)
  - BALANCE DISORDER [None]
  - BONE PAIN [None]
  - CLUMSINESS [None]
  - COGNITIVE DISORDER [None]
  - CONTUSION [None]
  - DIZZINESS [None]
  - DYSARTHRIA [None]
  - FATIGUE [None]
  - GAIT DISTURBANCE [None]
  - INJURY [None]
  - MOBILITY DECREASED [None]
